FAERS Safety Report 15167302 (Version 1)
Quarter: 2018Q3

REPORT INFORMATION
  Report Type: Spontaneous
  Country: US (occurrence: US)
  Receive Date: 20180719
  Receipt Date: 20180719
  Transmission Date: 20181010
  Serious: No
  Sender: FDA-Public Use
  Company Number: US-BAYER-2018-130944

PATIENT
  Age: 11 Year
  Sex: Female
  Weight: 39 kg

DRUGS (1)
  1. MIRALAX [Suspect]
     Active Substance: POLYETHYLENE GLYCOL 3350
     Indication: GASTROINTESTINAL DISORDER
     Dosage: 16 G, UNK
     Route: 048
     Dates: start: 2015, end: 2015

REACTIONS (2)
  - Drug administered to patient of inappropriate age [Unknown]
  - Product use issue [Unknown]

NARRATIVE: CASE EVENT DATE: 2015
